FAERS Safety Report 6682630-X (Version None)
Quarter: 2010Q2

REPORT INFORMATION
  Report Type: 
  Country: None (occurrence: None)
  Receive Date: 20100415
  Receipt Date: 20100406
  Transmission Date: 20101027
  Serious: Yes (Other)
  Sender: FDA-Public Use
  Company Number: PHHY2010US20683

PATIENT
  Age: 63 Year
  Sex: Female

DRUGS (2)
  1. RECLAST [Suspect]
     Dosage: 5 MG YEARLY
     Route: 042
  2. RECLAST [Suspect]
     Dosage: 5 MG YEARLY
     Route: 042

REACTIONS (1)
  - GAMMOPATHY [None]
